FAERS Safety Report 10196370 (Version 1)
Quarter: 2014Q2

REPORT INFORMATION
  Report Type: Spontaneous
  Country: US (occurrence: US)
  Receive Date: 20140527
  Receipt Date: 20140527
  Transmission Date: 20141212
  Serious: Yes (Death, Hospitalization)
  Sender: FDA-Public Use
  Company Number: US-JNJFOC-20140508648

PATIENT
  Age: 76 Year
  Sex: Female
  Weight: 61.68 kg

DRUGS (23)
  1. DURAGESIC [Suspect]
     Indication: PRODUCT USED FOR UNKNOWN INDICATION
     Route: 062
  2. LETAIRIS [Suspect]
     Indication: PULMONARY ARTERIAL HYPERTENSION
     Route: 048
  3. LETAIRIS [Suspect]
     Indication: PULMONARY ARTERIAL HYPERTENSION
     Route: 048
     Dates: start: 201001, end: 20131112
  4. REVATIO [Concomitant]
     Route: 065
  5. XIFAXAN [Concomitant]
     Route: 065
  6. FORTEO [Concomitant]
     Route: 065
  7. ZOSYN [Concomitant]
     Route: 065
  8. PROTONIX [Concomitant]
     Route: 065
  9. LEVALBUTEROL [Concomitant]
     Route: 065
  10. MUPIROCIN [Concomitant]
     Route: 065
  11. GABAPENTIN [Concomitant]
     Route: 065
  12. DIGOXIN [Concomitant]
     Route: 065
  13. AMIODARONE [Concomitant]
     Route: 065
  14. SOLU-MEDROL [Concomitant]
     Route: 065
  15. SPIRIVA [Concomitant]
     Route: 065
  16. METHOTREXATE [Concomitant]
     Route: 065
  17. LASIX [Concomitant]
     Route: 065
  18. ENBREL [Concomitant]
     Route: 065
  19. OMEPRAZOLE [Concomitant]
     Route: 065
  20. PROZAC [Concomitant]
     Route: 065
  21. SPIRONOLACTONE [Concomitant]
     Route: 065
  22. VENTAVIS [Concomitant]
     Route: 065
  23. WARFARIN [Concomitant]
     Route: 065

REACTIONS (6)
  - Pneumonia [Fatal]
  - Respiratory failure [Fatal]
  - Septic shock [Fatal]
  - Renal failure acute [Fatal]
  - Hypotension [Unknown]
  - Altered state of consciousness [Recovered/Resolved with Sequelae]
